FAERS Safety Report 5143291-4 (Version None)
Quarter: 2006Q4

REPORT INFORMATION
  Report Type: 
  Country: None (occurrence: None)
  Receive Date: 20061103
  Receipt Date: 20061025
  Transmission Date: 20070319
  Serious: Yes (Disabling)
  Sender: FDA-Public Use
  Company Number: 2006AP05166

PATIENT
  Age: 42 Year
  Sex: Female

DRUGS (8)
  1. ANAPEINE [Suspect]
     Indication: EPIDURAL ANAESTHESIA
     Route: 008
     Dates: start: 20041029, end: 20041029
  2. ANAPEINE [Suspect]
     Route: 008
     Dates: start: 20041029
  3. CARBOCAIN [Suspect]
     Indication: EPIDURAL ANAESTHESIA
     Route: 008
     Dates: start: 20041029, end: 20041029
  4. LAUGHING GAS [Concomitant]
     Indication: ANAESTHESIA
     Route: 055
     Dates: start: 20041029, end: 20041029
  5. OXYGEN [Concomitant]
     Indication: ANAESTHESIA
     Route: 055
     Dates: start: 20041029, end: 20041029
  6. ISOFLURANE [Concomitant]
     Indication: ANAESTHESIA
     Route: 055
     Dates: start: 20041029, end: 20041029
  7. MORPHINE [Concomitant]
     Indication: EPIDURAL ANAESTHESIA
     Route: 008
     Dates: start: 20041029, end: 20041029
  8. MORPHINE [Concomitant]
     Route: 008
     Dates: start: 20041029

REACTIONS (3)
  - ANAESTHETIC COMPLICATION [None]
  - POST PROCEDURAL COMPLICATION [None]
  - SENSORIMOTOR DISORDER [None]
